FAERS Safety Report 9748455 (Version 2)
Quarter: 2014Q1

REPORT INFORMATION
  Report Type: Spontaneous
  Country: FR (occurrence: FR)
  Receive Date: 20131212
  Receipt Date: 20140130
  Transmission Date: 20141002
  Serious: Yes (Hospitalization)
  Sender: FDA-Public Use
  Company Number: FR-NOVOPROD-394777

PATIENT
  Age: 19 Year
  Sex: Female

DRUGS (6)
  1. NOVORAPID [Suspect]
     Indication: TYPE 1 DIABETES MELLITUS
     Dosage: 32 IU, QD
     Route: 058
  2. INSULATARD [Interacting]
     Indication: TYPE 1 DIABETES MELLITUS
     Dosage: 8 IU, QID (8 IU FOUR TIMES DAILY)
     Route: 058
  3. LEVOCARNIL [Interacting]
     Indication: PRODUCT USED FOR UNKNOWN INDICATION
     Dosage: 6 DF, QD (6 PHARMACEUTICAL DOSES DAILY)
     Route: 048
  4. ZELITREX [Concomitant]
     Indication: PRODUCT USED FOR UNKNOWN INDICATION
     Dosage: 500 MG
     Route: 048
  5. BEFLAVINE [Concomitant]
     Indication: PRODUCT USED FOR UNKNOWN INDICATION
     Dosage: 10 MG
     Route: 048
  6. LEVOTHYROX [Concomitant]
     Dosage: 75 ?G, QD
     Route: 048

REACTIONS (2)
  - Drug interaction [Recovered/Resolved]
  - Hypoglycaemia [Recovered/Resolved]
